FAERS Safety Report 20852509 (Version 2)
Quarter: 2022Q2

REPORT INFORMATION
  Report Type: Spontaneous
  Country: US (occurrence: US)
  Receive Date: 20220520
  Receipt Date: 20220606
  Transmission Date: 20220721
  Serious: No
  Sender: FDA-Public Use
  Company Number: US-BAUSCH-BL-2022-011709

PATIENT
  Sex: Male

DRUGS (1)
  1. BRIMONIDINE TARTRATE [Suspect]
     Active Substance: BRIMONIDINE TARTRATE
     Indication: Product used for unknown indication
     Route: 065
     Dates: start: 20220223

REACTIONS (9)
  - Hypotension [Recovered/Resolved]
  - Instillation site swelling [Recovered/Resolved]
  - Instillation site rash [Recovered/Resolved]
  - Instillation site pruritus [Recovered/Resolved]
  - Instillation site erythema [Recovered/Resolved]
  - Somnolence [Recovered/Resolved]
  - Dry mouth [Recovered/Resolved]
  - Photophobia [Recovered/Resolved]
  - Headache [Recovered/Resolved]

NARRATIVE: CASE EVENT DATE: 20220101
